FAERS Safety Report 7297844-8 (Version None)
Quarter: 2011Q1

REPORT INFORMATION
  Report Type: 
  Country: None (occurrence: None)
  Receive Date: 20110217
  Receipt Date: 20101115
  Transmission Date: 20110831
  Serious: No
  Sender: FDA-Public Use
  Company Number: US-KINGPHARMUSA00001-K201001402

PATIENT
  Sex: Female

DRUGS (5)
  1. FLECTOR [Suspect]
     Dosage: 1 PATCH Q12H, BIW
     Route: 061
     Dates: start: 20101001
  2. HYDROCHLOROTHIAZIDE [Concomitant]
  3. CETIRIZINE [Concomitant]
     Indication: HYPERSENSITIVITY
  4. PROPRANOLOL [Concomitant]
     Indication: MIGRAINE
  5. FLECTOR [Suspect]
     Indication: OSTEOARTHRITIS
     Dosage: 1 PATCH Q12H, QD
     Route: 061
     Dates: start: 20101001, end: 20101001

REACTIONS (6)
  - APPLICATION SITE INFECTION [None]
  - APPLICATION SITE DISCHARGE [None]
  - APPLICATION SITE PRURITUS [None]
  - APPLICATION SITE DERMATITIS [None]
  - APPLICATION SITE PAPULES [None]
  - APPLICATION SITE INFLAMMATION [None]
